FAERS Safety Report 9096714 (Version 2)
Quarter: 2014Q4

REPORT INFORMATION
  Report Type: Spontaneous
  Country: CA (occurrence: CA)
  Receive Date: 20130211
  Receipt Date: 20141024
  Transmission Date: 20150529
  Serious: Yes (Death, Other)
  Sender: FDA-Public Use
  Company Number: CA-ELI_LILLY_AND_COMPANY-CA201302000446

PATIENT
  Age: 19 Year
  Sex: Female
  Weight: 65 kg

DRUGS (13)
  1. ATIVAN [Suspect]
     Active Substance: LORAZEPAM
     Indication: PRODUCT USED FOR UNKNOWN INDICATION
     Dosage: 2 MG, UNKNOWN
     Route: 065
  2. APO DIAZEPAM [Suspect]
     Active Substance: DIAZEPAM
     Indication: PRODUCT USED FOR UNKNOWN INDICATION
     Dosage: 5 MG, UNKNOWN
     Route: 065
  3. SEROQUEL [Suspect]
     Active Substance: QUETIAPINE FUMARATE
     Indication: PRODUCT USED FOR UNKNOWN INDICATION
     Dosage: 25 MG, UNKNOWN
     Route: 065
  4. PMS-BENZTROPINE [Concomitant]
     Dosage: UNK, UNKNOWN
     Route: 065
  5. CITALOPRAM [Suspect]
     Active Substance: CITALOPRAM HYDROBROMIDE
     Indication: PRODUCT USED FOR UNKNOWN INDICATION
     Dosage: UNK, UNKNOWN
     Route: 065
  6. CITALOPRAM [Suspect]
     Active Substance: CITALOPRAM HYDROBROMIDE
     Indication: PRODUCT USED FOR UNKNOWN INDICATION
     Dosage: UNK UNK, UNKNOWN
     Route: 065
  7. STATEX [Concomitant]
     Active Substance: MORPHINE SULFATE
     Dosage: UNK
  8. TYLENOL [Concomitant]
     Active Substance: ACETAMINOPHEN
     Dosage: UNK
  9. AMITRIPTYLINE HYDROCHLORIDE. [Suspect]
     Active Substance: AMITRIPTYLINE HYDROCHLORIDE
     Indication: PRODUCT USED FOR UNKNOWN INDICATION
     Dosage: 10 MG, UNKNOWN
     Route: 065
  10. HALDOL [Suspect]
     Active Substance: HALOPERIDOL
     Indication: PRODUCT USED FOR UNKNOWN INDICATION
     Dosage: UNK UNK, UNKNOWN
     Route: 065
  11. ZYPREXA ZYDIS [Suspect]
     Active Substance: OLANZAPINE
     Indication: PRODUCT USED FOR UNKNOWN INDICATION
     Dosage: UNK, UNKNOWN
     Route: 065
  12. VIOXX [Concomitant]
     Active Substance: ROFECOXIB
     Dosage: UNK
  13. ACETAMINOPHEN. [Concomitant]
     Active Substance: ACETAMINOPHEN

REACTIONS (27)
  - Depressed level of consciousness [Unknown]
  - Disinhibition [Unknown]
  - Injury [Unknown]
  - Drug withdrawal syndrome [Unknown]
  - Mouth haemorrhage [Unknown]
  - Dyskinesia [Unknown]
  - Confusional state [Unknown]
  - Face oedema [Unknown]
  - Asphyxia [Unknown]
  - Morbid thoughts [Unknown]
  - Depersonalisation [Unknown]
  - Completed suicide [Fatal]
  - Cervical vertebral fracture [Unknown]
  - Gait disturbance [Unknown]
  - Anger [Unknown]
  - Laceration [Unknown]
  - Depressed mood [Unknown]
  - Social avoidant behaviour [Unknown]
  - Aggression [Unknown]
  - Suicidal ideation [Unknown]
  - Major depression [Unknown]
  - Abnormal behaviour [Unknown]
  - Sleep disorder [Unknown]
  - Psychotic disorder [Unknown]
  - Personality disorder [Unknown]
  - Affect lability [Unknown]
  - Irritability [Unknown]
